FAERS Safety Report 5230841-2 (Version None)
Quarter: 2007Q1

REPORT INFORMATION
  Report Type: 
  Country: None (occurrence: None)
  Receive Date: 20070202
  Receipt Date: 20070122
  Transmission Date: 20070707
  Serious: Yes (Hospitalization)
  Sender: FDA-Public Use
  Company Number: 2007-153450-NL

PATIENT
  Age: 22 Year
  Sex: Male

DRUGS (3)
  1. NANDROLONE DECANOATE [Suspect]
     Dosage: DF INTRAMUSCULAR
     Route: 030
     Dates: start: 20061201
  2. PARACETAMOL [Suspect]
     Dosage: DF ORAL
     Route: 048
     Dates: start: 20061217, end: 20061217
  3. IBUPROFEN [Suspect]
     Dosage: DF ORAL
     Route: 048
     Dates: start: 20061217, end: 20061217

REACTIONS (5)
  - ABDOMINAL PAIN UPPER [None]
  - ALANINE AMINOTRANSFERASE INCREASED [None]
  - ALCOHOL USE [None]
  - DRUG TOXICITY [None]
  - RESTLESSNESS [None]
